FAERS Safety Report 25673986 (Version 1)
Quarter: 2025Q3

REPORT INFORMATION
  Report Type: Report from Study
  Country: IN (occurrence: IN)
  Receive Date: 20250813
  Receipt Date: 20250813
  Transmission Date: 20251021
  Serious: Yes (Hospitalization)
  Sender: ROCHE
  Company Number: IN-ROCHE-10000357556

PATIENT
  Age: 68 Year
  Sex: Female

DRUGS (1)
  1. AVASTIN [Suspect]
     Active Substance: BEVACIZUMAB
     Indication: Endometrial cancer metastatic
     Route: 042
     Dates: start: 20191130

REACTIONS (2)
  - Asthenia [Recovered/Resolved with Sequelae]
  - Dengue fever [Recovered/Resolved with Sequelae]

NARRATIVE: CASE EVENT DATE: 20250806
